FAERS Safety Report 5154258-4 (Version None)
Quarter: 2006Q4

REPORT INFORMATION
  Report Type: 
  Country: None (occurrence: None)
  Receive Date: 20061120
  Receipt Date: 20061102
  Transmission Date: 20070319
  Serious: Yes (Other)
  Sender: FDA-Public Use
  Company Number: US-ELI_LILLY_AND_COMPANY-US200611000677

PATIENT
  Age: 57 Year
  Sex: Female

DRUGS (5)
  1. CYMBALTA [Suspect]
     Indication: TRIGEMINAL NEURALGIA
     Dosage: 60 MG, 2/D
     Dates: start: 20050601
  2. NEURONTIN [Concomitant]
  3. TRILEPTAL [Concomitant]
     Dates: start: 20050701
  4. WELLBUTRIN [Concomitant]
  5. CELEXA [Concomitant]

REACTIONS (3)
  - CONVULSION [None]
  - HYPONATRAEMIA [None]
  - SYNCOPE [None]
